FAERS Safety Report 5726763-0 (Version None)
Quarter: 2008Q2

REPORT INFORMATION
  Report Type: 
  Country: None (occurrence: None)
  Receive Date: 20080502
  Receipt Date: 20080423
  Transmission Date: 20081010
  Serious: Yes (Hospitalization, Other)
  Sender: FDA-Public Use
  Company Number: DE-ABBOTT-08P-062-0449671-00

PATIENT
  Age: 50 Year
  Sex: Male

DRUGS (8)
  1. FENOFIBRATE [Suspect]
     Indication: PROPHYLAXIS
  2. FENOFIBRATE [Suspect]
     Indication: BLOOD TRIGLYCERIDES INCREASED
  3. FENOFIBRATE [Suspect]
  4. BEXAROTENE [Suspect]
     Indication: LYMPHOMA
  5. BEXAROTENE [Suspect]
  6. BEXAROTENE [Suspect]
  7. BEXAROTENE [Suspect]
     Dosage: UNKNOWN
  8. VORINOSTAT [Suspect]
     Indication: LYMPHOMA

REACTIONS (3)
  - GRANULOMA [None]
  - PYREXIA [None]
  - SKIN NECROSIS [None]
